FAERS Safety Report 8512360 (Version 2)
Quarter: 2012Q4

REPORT INFORMATION
  Report Type: 
  Country: US (occurrence: US)
  Receive Date: 20120413
  Receipt Date: 20121106
  Transmission Date: 20130627
  Serious: No
  Sender: FDA-Public Use
  Company Number: US-ASTRAZENECA-2011SE34781

PATIENT
  Age: 74 Year
  Sex: Female

DRUGS (3)
  1. NEXIUM [Suspect]
     Route: 048
  2. REMICADE INFUSION [Concomitant]
  3. OXYCONTIN [Concomitant]

REACTIONS (7)
  - Gastric disorder [Unknown]
  - Rheumatoid arthritis [Unknown]
  - Poor peripheral circulation [Unknown]
  - Gastrooesophageal reflux disease [Unknown]
  - Hernia [Unknown]
  - Sinus disorder [Unknown]
  - Ear infection [Unknown]
